FAERS Safety Report 17500982 (Version 2)
Quarter: 2020Q2

REPORT INFORMATION
  Report Type: Spontaneous
  Country: US (occurrence: US)
  Receive Date: 20200305
  Receipt Date: 20200428
  Transmission Date: 20200713
  Serious: Yes (Hospitalization, Other)
  Sender: FDA-Public Use
  Company Number: US-ELI_LILLY_AND_COMPANY-US202002011508

PATIENT
  Sex: Male

DRUGS (1)
  1. HUMALOG [Suspect]
     Active Substance: INSULIN LISPRO
     Indication: TYPE 1 DIABETES MELLITUS
     Dosage: UNK UNK, UNKNOWN
     Route: 058

REACTIONS (11)
  - Cardiac disorder [Recovered/Resolved]
  - Retinal tear [Recovered/Resolved]
  - Fall [Recovered/Resolved]
  - Retinal detachment [Recovered/Resolved]
  - Hypoglycaemic unconsciousness [Recovered/Resolved]
  - Insulin resistance [Unknown]
  - Gastric ulcer haemorrhage [Recovered/Resolved]
  - Cataract [Recovered/Resolved]
  - Blindness unilateral [Recovered/Resolved]
  - Transient ischaemic attack [Unknown]
  - Diabetic retinopathy [Unknown]

NARRATIVE: CASE EVENT DATE: 1998
